FAERS Safety Report 11912492 (Version 3)
Quarter: 2016Q1

REPORT INFORMATION
  Report Type: Spontaneous
  Country: US (occurrence: US)
  Receive Date: 20160113
  Receipt Date: 20160127
  Transmission Date: 20160526
  Serious: Yes (Death, Other)
  Sender: FDA-Public Use
  Company Number: US-PFIZER INC-2015473848

PATIENT
  Age: 81 Year
  Sex: Female
  Weight: 73.47 kg

DRUGS (3)
  1. IBRANCE [Suspect]
     Active Substance: PALBOCICLIB
     Dosage: UNK
     Dates: start: 20160107
  2. IBRANCE [Suspect]
     Active Substance: PALBOCICLIB
     Dosage: 125 MG, CYCLIC (DAY 1-21 Q 28 DAYS)
     Route: 048
     Dates: start: 20151211
  3. IBRANCE [Suspect]
     Active Substance: PALBOCICLIB
     Indication: BREAST CANCER
     Dosage: 125 MG, CYCLIC (DAY 1-21 Q 28 DAYS)
     Route: 048
     Dates: start: 20151211

REACTIONS (7)
  - Blood glucose increased [Unknown]
  - Disease progression [Unknown]
  - Breast cancer [Unknown]
  - Lethargy [Unknown]
  - Fall [Unknown]
  - International normalised ratio increased [Unknown]
  - Death [Fatal]

NARRATIVE: CASE EVENT DATE: 20160107
